FAERS Safety Report 12394737 (Version 3)
Quarter: 2016Q3

REPORT INFORMATION
  Report Type: Report from Study
  Country: UM (occurrence: US)
  Receive Date: 20160523
  Receipt Date: 20160818
  Transmission Date: 20161109
  Serious: No
  Sender: FDA-Public Use
  Company Number: US-BRISTOL-MYERS SQUIBB COMPANY-BMS-2016-038446

PATIENT
  Sex: Female
  Weight: 68 kg

DRUGS (2)
  1. VITAMIN K [Concomitant]
     Active Substance: PHYTONADIONE
     Indication: PROTHROMBIN LEVEL DECREASED
     Route: 065
  2. APIXABAN [Suspect]
     Active Substance: APIXABAN
     Indication: THROMBOSIS PROPHYLAXIS
     Dosage: 5 MG, BID
     Route: 048

REACTIONS (5)
  - Adverse event [Unknown]
  - Gingival bleeding [Unknown]
  - Night sweats [Unknown]
  - Pruritus [Unknown]
  - Logorrhoea [Unknown]
